FAERS Safety Report 4497554-6 (Version None)
Quarter: 2004Q4

REPORT INFORMATION
  Report Type: 
  Country: None (occurrence: None)
  Receive Date: 20041104
  Receipt Date: 20041022
  Transmission Date: 20050328
  Serious: Yes (Life-Threatening, Disabling)
  Sender: FDA-Public Use
  Company Number: CIP04002281

PATIENT
  Age: 80 Year
  Sex: Female

DRUGS (8)
  1. ACTONEL [Suspect]
     Indication: OSTEOPOROSIS
     Dosage: 2.5 MG DAILY, ORAL
     Route: 048
     Dates: start: 20040813, end: 20040908
  2. TICLOPIDINE HCL [Concomitant]
  3. TEGRETOL [Concomitant]
  4. NIFEDIPINE [Concomitant]
  5. FAMOTIDINE [Concomitant]
  6. BLOPRESS (CANDESARTAN CILEXETIL) [Concomitant]
  7. URSO [Concomitant]
  8. ISOSORBIDE DINITRATE [Concomitant]

REACTIONS (15)
  - ARTHRALGIA [None]
  - AUTOIMMUNE DISORDER [None]
  - BLOOD CREATINE PHOSPHOKINASE INCREASED [None]
  - BONE PAIN [None]
  - ERYTHEMA [None]
  - ERYTHEMA MULTIFORME [None]
  - ERYTHEMA NODOSUM [None]
  - FEELING HOT [None]
  - INFLAMMATION [None]
  - LABORATORY TEST ABNORMAL [None]
  - RASH [None]
  - RED BLOOD CELL COUNT DECREASED [None]
  - SKIN NODULE [None]
  - TENDERNESS [None]
  - WHITE BLOOD CELL COUNT INCREASED [None]
